FAERS Safety Report 17162331 (Version 4)
Quarter: 2020Q1

REPORT INFORMATION
  Report Type: Report from Study
  Country: None (occurrence: US)
  Receive Date: 20191217
  Receipt Date: 20200128
  Transmission Date: 20200409
  Serious: Yes (Death, Hospitalization, Other)
  Sender: FDA-Public Use
  Company Number: US-ABBVIE-19P-163-3193511-00

PATIENT
  Age: 78 Year
  Sex: Male

DRUGS (3)
  1. IMBRUVICA [Suspect]
     Active Substance: IBRUTINIB
     Indication: CHRONIC LYMPHOCYTIC LEUKAEMIA RECURRENT
  2. IMBRUVICA [Suspect]
     Active Substance: IBRUTINIB
     Indication: CHRONIC LYMPHOCYTIC LEUKAEMIA
     Route: 048
     Dates: start: 20191204
  3. AMLODIPINE [Suspect]
     Active Substance: AMLODIPINE BESYLATE
     Indication: PRODUCT USED FOR UNKNOWN INDICATION
     Route: 065

REACTIONS (19)
  - Diabetic foot [Unknown]
  - Blood magnesium decreased [Unknown]
  - Dehydration [Unknown]
  - Death [Fatal]
  - Blood pressure abnormal [Unknown]
  - Unevaluable event [Unknown]
  - Platelet count decreased [Unknown]
  - Blood glucose decreased [Unknown]
  - Peripheral swelling [Recovering/Resolving]
  - Blood electrolytes abnormal [Unknown]
  - Confusional state [Unknown]
  - Clostridium difficile infection [Unknown]
  - Blood calcium increased [Recovered/Resolved]
  - Blood count abnormal [Unknown]
  - Diarrhoea [Unknown]
  - Renal disorder [Unknown]
  - Peripheral swelling [Unknown]
  - Urinary tract infection [Unknown]
  - Epistaxis [Unknown]

NARRATIVE: CASE EVENT DATE: 20200120
